FAERS Safety Report 10965982 (Version 1)
Quarter: 2015Q1

REPORT INFORMATION
  Report Type: Spontaneous
  Country: CA (occurrence: CA)
  Receive Date: 20150330
  Receipt Date: 20150330
  Transmission Date: 20150721
  Serious: Yes (Other)
  Sender: FDA-Public Use
  Company Number: CA-NOVOPROD-442649

PATIENT
  Sex: Female

DRUGS (4)
  1. COLACE [Concomitant]
     Active Substance: DOCUSATE SODIUM
  2. PANTOLOC                           /01263204/ [Concomitant]
     Active Substance: PANTOPRAZOLE SODIUM
  3. VAGIFEM [Suspect]
     Active Substance: ESTRADIOL
     Indication: VAGINAL DISORDER
     Dosage: 1 TAB, QW (1TAB EVERY ONE WEEK)
     Route: 067
  4. VAGIFEM [Suspect]
     Active Substance: ESTRADIOL
     Dosage: 2 TAB, QW (2 TAB EVERY ONE WEEK)
     Route: 067

REACTIONS (3)
  - Nervous system disorder [Recovered/Resolved]
  - Breast discomfort [Recovered/Resolved]
  - Diplopia [Recovered/Resolved]
